FAERS Safety Report 7071204-7 (Version None)
Quarter: 2010Q4

REPORT INFORMATION
  Report Type: 
  Country: None (occurrence: None)
  Receive Date: 20101029
  Receipt Date: 20101019
  Transmission Date: 20110411
  Serious: Yes (Hospitalization, Disabling, Other)
  Sender: FDA-Public Use
  Company Number: US-CELGENEUS-163-21880-10091708

PATIENT
  Sex: Male

DRUGS (1)
  1. REVLIMID [Suspect]
     Route: 048
     Dates: start: 20100806

REACTIONS (5)
  - ANAEMIA [None]
  - ASTHENIA [None]
  - HYPOVENTILATION [None]
  - RENAL FAILURE [None]
  - TESTICULAR SWELLING [None]
